FAERS Safety Report 8785978 (Version 2)
Quarter: 2012Q4

REPORT INFORMATION
  Report Type: Spontaneous
  Country: GB (occurrence: None)
  Receive Date: 20120905
  Receipt Date: 20120918
  Transmission Date: 20130627
  Serious: Yes (Life-Threatening)
  Sender: FDA-Public Use
  Company Number: FK201202536

PATIENT
  Age: 18 Year
  Sex: Female
  Weight: 44.3 kg

DRUGS (10)
  1. VANCOMYCIN [Suspect]
     Indication: DEVICE RELATED INFECTION
     Route: 042
     Dates: start: 20120719
  2. VANCOMYCIN [Suspect]
     Indication: DEVICE RELATED INFECTION
     Dosage: 3 IN 1 D
  3. TAZOBACTAM [Suspect]
     Indication: SEPSIS
     Route: 042
     Dates: start: 20120719
  4. CHLORPHENAMINE [Concomitant]
  5. CODEINE [Concomitant]
  6. HYDROCORTISONE [Concomitant]
  7. PARACETAMOL [Concomitant]
  8. TEICOPLANIN [Concomitant]
  9. MEROPENEM (MEROPENEM) [Concomitant]
  10. GENTAMICIN (GENTAMICIN) [Concomitant]

REACTIONS (2)
  - Anaphylactic reaction [None]
  - Sepsis [None]
